FAERS Safety Report 4276053-0 (Version None)
Quarter: 2004Q1

REPORT INFORMATION
  Report Type: 
  Country: None (occurrence: None)
  Receive Date: 20040121
  Receipt Date: 20030714
  Transmission Date: 20041129
  Serious: No
  Sender: FDA-Public Use
  Company Number: US-GLAXOSMITHKLINE-A0417657A

PATIENT
  Sex: Female

DRUGS (2)
  1. VALTREX [Suspect]
     Dosage: 3000MG PER DAY
     Route: 048
     Dates: start: 20030701
  2. CELEBREX [Concomitant]

REACTIONS (4)
  - HEADACHE [None]
  - NAUSEA [None]
  - PRE-EXISTING CONDITION IMPROVED [None]
  - UNEXPECTED THERAPEUTIC DRUG EFFECT [None]
